FAERS Safety Report 18682553 (Version 1)
Quarter: 2020Q4

REPORT INFORMATION
  Report Type: Spontaneous
  Country: US (occurrence: US)
  Receive Date: 20201229
  Receipt Date: 20201229
  Transmission Date: 20210114
  Serious: Yes (Other)
  Sender: FDA-Public Use
  Company Number: US-STRIDES ARCOLAB LIMITED-2020SP011101

PATIENT
  Age: 48 Year
  Sex: Male

DRUGS (1)
  1. OSELTAMIVIR [Suspect]
     Active Substance: OSELTAMIVIR
     Indication: PNEUMONIA INFLUENZAL
     Dosage: UNK
     Route: 065

REACTIONS (1)
  - Drug ineffective [Unknown]
